FAERS Safety Report 4813288-X (Version None)
Quarter: 2005Q4

REPORT INFORMATION
  Report Type: 
  Country: None (occurrence: None)
  Receive Date: 20051028
  Receipt Date: 20050422
  Transmission Date: 20060501
  Serious: No
  Sender: FDA-Public Use
  Company Number: US-GLAXOSMITHKLINE-A0555419A

PATIENT
  Age: 7 Year
  Sex: Male

DRUGS (4)
  1. ADVAIR DISKUS 100/50 [Suspect]
     Route: 055
  2. ALBUTEROL [Concomitant]
  3. SINGULAIR [Concomitant]
  4. NASONEX [Concomitant]

REACTIONS (2)
  - COUGH [None]
  - HEART RATE INCREASED [None]
